FAERS Safety Report 4718736-1 (Version None)
Quarter: 2005Q3

REPORT INFORMATION
  Report Type: 
  Country: None (occurrence: None)
  Receive Date: 20050719
  Receipt Date: 20050701
  Transmission Date: 20060218
  Serious: Yes (Hospitalization)
  Sender: FDA-Public Use
  Company Number: 216099

PATIENT
  Age: 37 Year
  Sex: Male

DRUGS (3)
  1. AVASTIN [Suspect]
     Indication: KAPOSI'S SARCOMA
     Dosage: 15 MG/KG, 2/MONTH, INTRAVENOUS
     Route: 042
     Dates: start: 20030409
  2. BACTRIM DS [Concomitant]
  3. COMBIVIR [Concomitant]

REACTIONS (1)
  - HERPES ZOSTER [None]
